FAERS Safety Report 25241860 (Version 1)
Quarter: 2025Q2

REPORT INFORMATION
  Report Type: Report from Study
  Country: PA (occurrence: PA)
  Receive Date: 20250426
  Receipt Date: 20250426
  Transmission Date: 20250716
  Serious: Yes (Death, Hospitalization, Other)
  Sender: TOLMAR
  Company Number: PA-TOLMAR, INC.-24PA045919

PATIENT
  Age: 75 Year
  Sex: Male

DRUGS (2)
  1. ELIGARD [Suspect]
     Active Substance: LEUPROLIDE ACETATE
     Indication: Prostate cancer
     Dosage: 45 MILLIGRAM, Q 6 MONTH
     Route: 058
     Dates: start: 20220512, end: 202410
  2. ELIGARD [Suspect]
     Active Substance: LEUPROLIDE ACETATE
     Indication: Prostate cancer

REACTIONS (4)
  - Death [Fatal]
  - COVID-19 [Not Recovered/Not Resolved]
  - Illness [Unknown]
  - Intentional product use issue [Unknown]
